FAERS Safety Report 9222772 (Version 1)
Quarter: 2013Q1

REPORT INFORMATION
  Report Type: Spontaneous
  Country: US (occurrence: None)
  Receive Date: 20120912
  Receipt Date: 20120912
  Transmission Date: 20140127
  Serious: No
  Sender: FDA-Public Use
  Company Number: 2012SP028896

PATIENT
  Age: 53 Year
  Sex: Male

DRUGS (2)
  1. VICTRELIS [Suspect]
     Indication: HEPATITIS C
     Route: 048
     Dates: start: 20120424
  2. PEGINTRON [Suspect]
     Indication: HEPATITIS C
     Dates: start: 20120320

REACTIONS (2)
  - Phlebitis superficial [None]
  - Cellulitis [None]
